FAERS Safety Report 5049425-4 (Version None)
Quarter: 2006Q2

REPORT INFORMATION
  Report Type: 
  Country: None (occurrence: None)
  Receive Date: 20060613
  Receipt Date: 20060417
  Transmission Date: 20061013
  Serious: No
  Sender: FDA-Public Use
  Company Number: 2006-00887

PATIENT
  Age: 37 Year
  Sex: Male

DRUGS (1)
  1. VELCADE [Suspect]
     Indication: MULTIPLE MYELOMA
     Dosage: 2.50 MG, IV BOLUS
     Route: 040
     Dates: start: 20060301, end: 20060401

REACTIONS (1)
  - TESTICULAR PAIN [None]
